FAERS Safety Report 5333637-6 (Version None)
Quarter: 2007Q2

REPORT INFORMATION
  Report Type: 
  Country: None (occurrence: None)
  Receive Date: 20070306
  Receipt Date: 20060302
  Transmission Date: 20071010
  Serious: Yes (Other)
  Sender: FDA-Public Use
  Company Number: A03200601172

PATIENT
  Age: 77 Year
  Sex: Male
  Weight: 90.7 kg

DRUGS (11)
  1. PLAVIX [Suspect]
     Indication: CARDIAC DISORDER
     Dosage: 75 MG QD ORAL
     Route: 048
     Dates: start: 20060228
  2. PLAVIX [Suspect]
     Indication: CEREBROVASCULAR ACCIDENT
     Dosage: 75 MG QD ORAL
     Route: 048
     Dates: start: 20060228
  3. PLAVIX [Suspect]
     Indication: TRANSIENT ISCHAEMIC ATTACK
     Dosage: 75 MG QD ORAL
     Route: 048
     Dates: start: 20060228
  4. RANITIDINE HYDROCHLORIDE [Concomitant]
  5. VITAMIN [Concomitant]
  6. ACETYLSALICYLIC ACID SRT [Concomitant]
  7. ALFUZOSIN HYDROCHLORIDE [Concomitant]
  8. ATENOLOL [Concomitant]
  9. ASCORBIC ACID [Concomitant]
  10. ARTIFICIAL TEARS [Concomitant]
  11. CORTISONE ACETATE [Concomitant]

REACTIONS (11)
  - CONTUSION [None]
  - DIZZINESS [None]
  - DRUG ADMINISTRATION ERROR [None]
  - DRY MOUTH [None]
  - ECZEMA [None]
  - FATIGUE [None]
  - LOSS OF CONSCIOUSNESS [None]
  - NASOPHARYNGITIS [None]
  - PYREXIA [None]
  - RASH [None]
  - THERAPEUTIC RESPONSE UNEXPECTED [None]
